FAERS Safety Report 20761748 (Version 1)
Quarter: 2022Q2

REPORT INFORMATION
  Report Type: Spontaneous
  Country: US (occurrence: US)
  Receive Date: 20220428
  Receipt Date: 20220428
  Transmission Date: 20220720
  Serious: No
  Sender: FDA-Public Use
  Company Number: US-ALKEM LABORATORIES LIMITED-US-ALKEM-2022-02179

PATIENT
  Age: 28 Year
  Sex: Male

DRUGS (4)
  1. ARIPIPRAZOLE [Suspect]
     Active Substance: ARIPIPRAZOLE
     Indication: Dysphemia
     Dosage: UPTO 15 MG PER DAY
     Route: 065
  2. LURASIDONE [Suspect]
     Active Substance: LURASIDONE
     Indication: Dysphemia
     Dosage: UP TO 60 MG PER DAY
     Route: 065
  3. METHYLPHENIDATE HYDROCHLORIDE [Suspect]
     Active Substance: METHYLPHENIDATE HYDROCHLORIDE
     Indication: Attention deficit hyperactivity disorder
     Dosage: 5 MILLIGRAM, BID
     Route: 065
  4. ATOMOXETINE [Concomitant]
     Active Substance: ATOMOXETINE
     Indication: Attention deficit hyperactivity disorder
     Dosage: 80 MG PER DAY
     Route: 065

REACTIONS (2)
  - Drug ineffective [Unknown]
  - Therapeutic response unexpected [Unknown]
